FAERS Safety Report 14574646 (Version 1)
Quarter: 2018Q1

REPORT INFORMATION
  Report Type: Spontaneous
  Country: US (occurrence: US)
  Receive Date: 20180226
  Receipt Date: 20180226
  Transmission Date: 20180509
  Serious: No
  Sender: FDA-Public Use
  Company Number: None

PATIENT
  Age: 52 Year
  Sex: Male
  Weight: 92.2 kg

DRUGS (1)
  1. GLATIRAMEIR, 40 MG [Suspect]
     Active Substance: GLATIRAMER
     Indication: MULTIPLE SCLEROSIS
     Route: 030

REACTIONS (6)
  - Device malfunction [None]
  - Injection site urticaria [None]
  - Pruritus [None]
  - Headache [None]
  - Pyrexia [None]
  - Pain in extremity [None]

NARRATIVE: CASE EVENT DATE: 20180215
